FAERS Safety Report 4548488-X (Version None)
Quarter: 2005Q1

REPORT INFORMATION
  Report Type: 
  Country: None (occurrence: None)
  Receive Date: 20050105
  Receipt Date: 20050105
  Transmission Date: 20050727
  Serious: No
  Sender: FDA-Public Use
  Company Number: None

PATIENT
  Sex: Female

DRUGS (11)
  1. PAXIL [Suspect]
     Indication: ABNORMAL BEHAVIOUR
     Dosage: 40 MG ONE QD
     Dates: start: 20011022
  2. PAXIL [Suspect]
     Indication: ANXIETY
     Dosage: 40 MG ONE QD
     Dates: start: 20011022
  3. PAXIL [Suspect]
     Indication: CHROMOSOME ABNORMALITY
     Dosage: 40 MG ONE QD
     Dates: start: 20011022
  4. PAXIL [Suspect]
     Indication: DEPRESSION
     Dosage: 40 MG ONE QD
     Dates: start: 20011022
  5. PAXIL [Suspect]
     Indication: MENTAL RETARDATION SEVERITY UNSPECIFIED
     Dosage: 40 MG ONE QD
     Dates: start: 20011022
  6. ADDERALL 20 [Concomitant]
  7. LOESTRIN FEL [Concomitant]
  8. AMBIEN [Concomitant]
  9. ZYPREXA [Concomitant]
  10. LAMICTAL [Concomitant]
  11. PROZAC [Concomitant]

REACTIONS (5)
  - EATING DISORDER SYMPTOM [None]
  - INSOMNIA [None]
  - OBSESSIVE-COMPULSIVE DISORDER [None]
  - PERFORMANCE STATUS DECREASED [None]
  - SPEECH DISORDER [None]
